FAERS Safety Report 5849989-4 (Version None)
Quarter: 2008Q3

REPORT INFORMATION
  Report Type: 
  Country: None (occurrence: None)
  Receive Date: 20080819
  Receipt Date: 20080812
  Transmission Date: 20090109
  Serious: Yes (Other)
  Sender: FDA-Public Use
  Company Number: ES-SANOFI-SYNTHELABO-A01200809051

PATIENT
  Age: 66 Year
  Sex: Female

DRUGS (2)
  1. XELODA [Suspect]
     Indication: COLON CANCER
     Dosage: 2.5 G TOTAL DURING 1 MONTH (14 ADMINISTRATIONS)
     Route: 048
     Dates: end: 20080204
  2. ELOXATIN [Suspect]
     Indication: COLON CANCER
     Dosage: ONCE A MONTH
     Route: 041
     Dates: start: 20080201, end: 20080201

REACTIONS (1)
  - CUTANEOUS LUPUS ERYTHEMATOSUS [None]
